FAERS Safety Report 16705916 (Version 2)
Quarter: 2019Q3

REPORT INFORMATION
  Report Type: Report from Study
  Country: ES (occurrence: ES)
  Receive Date: 20190815
  Receipt Date: 20190920
  Transmission Date: 20191004
  Serious: Yes (Hospitalization)
  Sender: FDA-Public Use
  Company Number: ES-ACTELION-A-CH2019-194092

PATIENT
  Age: 75 Year
  Sex: Male
  Weight: 71 kg

DRUGS (13)
  1. SILODYX [Concomitant]
     Active Substance: SILODOSIN
     Indication: PROSTATITIS
     Dosage: 8 MG, QD
     Route: 048
     Dates: start: 20130409
  2. FOSAVANCE [Concomitant]
     Active Substance: ALENDRONATE SODIUM\CHOLECALCIFEROL
     Indication: POLYNEUROPATHY
     Dosage: 70 MG, QD
     Route: 048
     Dates: start: 20180208
  3. LYRICA [Concomitant]
     Active Substance: PREGABALIN
     Indication: SJOGREN^S SYNDROME
     Dosage: 150 MG, QD
     Route: 048
     Dates: start: 20180625
  4. DOLQUINE [Concomitant]
     Active Substance: HYDROXYCHLOROQUINE SULFATE
     Indication: SJOGREN^S SYNDROME
     Dosage: 200 MG, QD
     Route: 048
     Dates: start: 20180625
  5. OPSUMIT [Suspect]
     Active Substance: MACITENTAN
     Indication: PULMONARY ARTERIAL HYPERTENSION
     Dosage: 10 MG, QD
     Route: 048
     Dates: start: 20190128
  6. TORASEMIDA [Concomitant]
     Active Substance: TORSEMIDE
     Indication: HYPERTENSION
     Dosage: 10 MG, QD
     Route: 048
     Dates: start: 20180625
  7. OLMESARTAN [Concomitant]
     Active Substance: OLMESARTAN
     Indication: HYPERTENSION
     Dosage: 40 MG, QD
     Route: 048
     Dates: start: 20180214
  8. LEVEMIR [Concomitant]
     Active Substance: INSULIN DETEMIR
     Indication: DIABETES MELLITUS
     Dosage: 100 U/ML QD
     Route: 048
     Dates: start: 20060314
  9. DOXAZOSIN [Concomitant]
     Active Substance: DOXAZOSIN MESYLATE
     Indication: PROSTATITIS
     Dosage: 4 MG, QD
     Route: 048
     Dates: start: 20130409
  10. DULOXETINA [Concomitant]
     Active Substance: DULOXETINE
     Indication: SJOGREN^S SYNDROME
     Dosage: UNK
     Route: 048
     Dates: start: 20180625
  11. LANSOPRAZOL [Concomitant]
     Active Substance: LANSOPRAZOLE
     Dosage: 30 UNK
     Route: 048
     Dates: start: 20060314
  12. ESPIRONOLACTONA [Concomitant]
     Active Substance: SPIRONOLACTONE
     Indication: HYPERTENSION
     Dosage: 25 UNK, QD
     Route: 048
     Dates: start: 20060314
  13. BISOPROLOL [Concomitant]
     Active Substance: BISOPROLOL
     Indication: HYPERTENSION
     Dosage: 10 MG, QD
     Route: 048
     Dates: start: 20060314

REACTIONS (3)
  - Frequent bowel movements [Recovered/Resolved]
  - Gastroenteritis [Recovered/Resolved]
  - Dehydration [Recovered/Resolved]

NARRATIVE: CASE EVENT DATE: 20190724
